FAERS Safety Report 7343751-1 (Version None)
Quarter: 2011Q1

REPORT INFORMATION
  Report Type: 
  Country: None (occurrence: None)
  Receive Date: 20110310
  Receipt Date: 20110105
  Transmission Date: 20110831
  Serious: No
  Sender: FDA-Public Use
  Company Number: A0903293A

PATIENT
  Age: 20 Year
  Sex: Female

DRUGS (1)
  1. NICORETTE [Suspect]
     Route: 002
     Dates: start: 20101101

REACTIONS (1)
  - DRUG INEFFECTIVE [None]
